FAERS Safety Report 20462252 (Version 1)
Quarter: 2022Q1

REPORT INFORMATION
  Report Type: Spontaneous
  Country: None (occurrence: FR)
  Receive Date: 20220211
  Receipt Date: 20220211
  Transmission Date: 20220423
  Serious: Yes (Death)
  Sender: FDA-Public Use
  Company Number: FR-B.Braun Medical Inc.-2125805

PATIENT
  Sex: Male
  Weight: 0.8 kg

DRUGS (15)
  1. ACETAMINOPHEN [Suspect]
     Active Substance: ACETAMINOPHEN
  2. ROPIVACAINE HYDROCHLORIDE [Suspect]
     Active Substance: ROPIVACAINE HYDROCHLORIDE
  3. COMIRNATY [Suspect]
     Active Substance: TOZINAMERAN
  4. ONDANSETRON HYDROCHLORIDE [Suspect]
     Active Substance: ONDANSETRON HYDROCHLORIDE
  5. NEFOPAM [Suspect]
     Active Substance: NEFOPAM
  6. PHLOROGLUCINOL [Suspect]
     Active Substance: PHLOROGLUCINOL
  7. LEVOTHYROXINE [Suspect]
     Active Substance: LEVOTHYROXINE
  8. TRAMADOL HYDROCHLORIDE [Suspect]
     Active Substance: TRAMADOL HYDROCHLORIDE
  9. AMOXICILLIN [Suspect]
     Active Substance: AMOXICILLIN
  10. PANTOPRAZOLE [Suspect]
     Active Substance: PANTOPRAZOLE
  11. METRONIDAZOLE [Suspect]
     Active Substance: METRONIDAZOLE
  12. ENOXAPARIN SODIUM [Suspect]
     Active Substance: ENOXAPARIN SODIUM
  13. SERTACONAZOLE NITRATE [Suspect]
     Active Substance: SERTACONAZOLE NITRATE
  14. CEFOTAXIME [Suspect]
     Active Substance: CEFOTAXIME SODIUM
  15. CLAVULANIC ACID [Suspect]
     Active Substance: CLAVULANIC ACID

REACTIONS (2)
  - Urethral valves [Fatal]
  - Exposure during pregnancy [Fatal]
